FAERS Safety Report 19413483 (Version 2)
Quarter: 2023Q1

REPORT INFORMATION
  Report Type: Spontaneous
  Country: CA (occurrence: CA)
  Receive Date: 20210614
  Receipt Date: 20230207
  Transmission Date: 20230418
  Serious: Yes (Hospitalization, Other)
  Sender: FDA-Public Use
  Company Number: CA-MLMSERVICE-20210526-2905021-1

PATIENT
  Age: 15 Year
  Sex: Female

DRUGS (1)
  1. OLANZAPINE [Suspect]
     Active Substance: OLANZAPINE
     Indication: Product used for unknown indication
     Dosage: UNK UNK, UNKNOWN
     Route: 065

REACTIONS (13)
  - Leukocytosis [Recovered/Resolved]
  - Unresponsive to stimuli [Recovered/Resolved]
  - Headache [Recovered/Resolved]
  - C-reactive protein increased [Recovered/Resolved]
  - Hyperpyrexia [Recovered/Resolved]
  - Abdominal pain [Recovered/Resolved]
  - Lethargy [Recovered/Resolved]
  - Agitation [Recovered/Resolved]
  - Confusional state [Recovered/Resolved]
  - Aggression [Recovered/Resolved]
  - Overdose [Recovered/Resolved]
  - Depressed level of consciousness [Recovered/Resolved]
  - Tachycardia [Recovered/Resolved]
